FAERS Safety Report 8709546 (Version 3)
Quarter: 2013Q2

REPORT INFORMATION
  Report Type: Spontaneous
  Country: US (occurrence: US)
  Receive Date: 20120806
  Receipt Date: 20130506
  Transmission Date: 20140414
  Serious: No
  Sender: FDA-Public Use
  Company Number: US-ASTRAZENECA-2012SE50932

PATIENT
  Age: 61 Year
  Sex: Female

DRUGS (4)
  1. OMEPRAZOLE [Suspect]
     Route: 048
  2. OMEPRAZOLE [Suspect]
     Dosage: OVER THE COUNTER
     Route: 048
  3. NEXIUM [Suspect]
     Route: 048
  4. NEXIUM [Suspect]
     Dosage: GENERIC
     Route: 048

REACTIONS (7)
  - Oesophagitis [Unknown]
  - Regurgitation [Unknown]
  - Weight decreased [Unknown]
  - Gastrooesophageal reflux disease [Unknown]
  - Dyspepsia [Unknown]
  - Intentional drug misuse [Unknown]
  - Drug ineffective [Unknown]
